FAERS Safety Report 15793279 (Version 2)
Quarter: 2019Q1

REPORT INFORMATION
  Report Type: Report from Study
  Country: None (occurrence: CA)
  Receive Date: 20190107
  Receipt Date: 20190109
  Transmission Date: 20190417
  Serious: Yes (Other)
  Sender: FDA-Public Use
  Company Number: CA-ABBVIE-19S-028-2614633-00

PATIENT
  Age: 84 Year
  Sex: Male
  Weight: 88.08 kg

DRUGS (1)
  1. LUPRON DEPOT [Suspect]
     Active Substance: LEUPROLIDE ACETATE
     Indication: PROSTATE CANCER
     Route: 030

REACTIONS (3)
  - Haematuria [Not Recovered/Not Resolved]
  - Prostate cancer metastatic [Not Recovered/Not Resolved]
  - Urethral neoplasm [Not Recovered/Not Resolved]

NARRATIVE: CASE EVENT DATE: 20181116
